FAERS Safety Report 10993526 (Version 4)
Quarter: 2016Q2

REPORT INFORMATION
  Report Type: Report from Study
  Country: JP (occurrence: JP)
  Receive Date: 20150407
  Receipt Date: 20160421
  Transmission Date: 20160815
  Serious: Yes (Other)
  Sender: FDA-Public Use
  Company Number: JP-AMGEN-JPNCT2015033206

PATIENT
  Sex: Female
  Weight: 62 kg

DRUGS (15)
  1. PACLITAXEL. [Suspect]
     Active Substance: PACLITAXEL
     Indication: PRODUCT USED FOR UNKNOWN INDICATION
     Dosage: 140 MG, UNK
     Route: 041
     Dates: start: 20131127, end: 20141112
  2. CEROCRAL [Concomitant]
     Active Substance: IFENPRODIL
     Dosage: 40 MG, QD
     Route: 048
  3. DENOTAS [Concomitant]
     Active Substance: CALCIUM CARBONATE\CHOLECALCIFEROL\MAGNESIUM CARBONATE
     Dosage: 2 DF, QD
     Route: 048
     Dates: start: 20140219, end: 20150218
  4. HALAVEN [Concomitant]
     Active Substance: ERIBULIN MESYLATE
     Dosage: 2.1 MG, UNK
     Route: 041
     Dates: start: 20141217, end: 20150128
  5. LASIX [Concomitant]
     Active Substance: FUROSEMIDE
     Dosage: 20 MG, QD
     Route: 048
     Dates: start: 20140219
  6. PYDOXAL [Concomitant]
     Active Substance: PYRIDOXAL
     Dosage: 60 MG, QD
     Route: 048
     Dates: start: 20150218
  7. AVASTIN [Suspect]
     Active Substance: BEVACIZUMAB
     Indication: PRODUCT USED FOR UNKNOWN INDICATION
     Dosage: 615 MG, UNK
     Route: 065
     Dates: start: 20131127, end: 20141112
  8. XELODA [Concomitant]
     Active Substance: CAPECITABINE
     Dosage: UNK
     Route: 048
     Dates: start: 20150218
  9. BLOPRESS [Concomitant]
     Active Substance: CANDESARTAN CILEXETIL
     Dosage: 4 MG, QD
     Route: 048
  10. PATYUNA [Concomitant]
     Active Substance: TICLOPIDINE
     Dosage: 200 MG, QD
     Route: 048
  11. SERMION [Concomitant]
     Active Substance: NICERGOLINE
     Dosage: 5 MG, QD
     Route: 048
  12. GOSHAJINKIGAN [Concomitant]
     Active Substance: HERBALS
     Dosage: 7.5 G, QD
     Route: 048
     Dates: start: 20131127
  13. DENOSUMAB [Suspect]
     Active Substance: DENOSUMAB
     Indication: METASTASES TO BONE
     Dosage: 120 MG, UNK
     Route: 058
     Dates: start: 20140219
  14. AMLODIPINE [Concomitant]
     Active Substance: AMLODIPINE BESYLATE
     Dosage: 5 MG, QD
     Route: 048
  15. ENDOXAN [Concomitant]
     Active Substance: CYCLOPHOSPHAMIDE
     Dosage: UNK
     Route: 048
     Dates: start: 20150218

REACTIONS (7)
  - Hypercreatininaemia [Recovered/Resolved]
  - Hypoproteinaemia [Unknown]
  - Hyperkalaemia [Unknown]
  - Osteonecrosis of jaw [Unknown]
  - Hypoalbuminaemia [Unknown]
  - Hypocalcaemia [Recovered/Resolved]
  - Hyponatraemia [Unknown]

NARRATIVE: CASE EVENT DATE: 20140917
